FAERS Safety Report 9689970 (Version 1)
Quarter: 2013Q4

REPORT INFORMATION
  Report Type: Spontaneous
  Country: US (occurrence: US)
  Receive Date: 20131115
  Receipt Date: 20131115
  Transmission Date: 20140711
  Serious: No
  Sender: FDA-Public Use
  Company Number: US-PFIZER INC-2013323094

PATIENT
  Age: 53 Year
  Sex: Male

DRUGS (2)
  1. ADVIL [Suspect]
     Indication: SINUS HEADACHE
     Dosage: TWO TABLETS, ONCE A DAY
     Route: 048
     Dates: start: 20131106, end: 201311
  2. NETI-POTS [Concomitant]
     Dosage: UNK

REACTIONS (3)
  - Extra dose administered [Unknown]
  - Insomnia [Unknown]
  - Product label issue [Unknown]
